FAERS Safety Report 8312030-8 (Version None)
Quarter: 2012Q2

REPORT INFORMATION
  Report Type: 
  Country: None (occurrence: None)
  Receive Date: 20120425
  Receipt Date: 20120411
  Transmission Date: 20120825
  Serious: Yes (Other)
  Sender: FDA-Public Use
  Company Number: CA-ELI_LILLY_AND_COMPANY-CA201204003523

PATIENT
  Age: 39 Year
  Sex: Female
  Weight: 58.05 kg

DRUGS (6)
  1. PAXIL [Concomitant]
     Dosage: 45 MG, UNK
  2. STRATTERA [Suspect]
     Dosage: 10 MG, BID
  3. NASONEX [Concomitant]
  4. STRATTERA [Suspect]
     Dosage: 28 MG, QD
     Route: 048
  5. PAXIL [Concomitant]
     Dosage: 30 MG, UNK
  6. LEVONORGESTREL AND ETHINYL ESTRADIOL [Concomitant]

REACTIONS (8)
  - PALPITATIONS [None]
  - DEPRESSION [None]
  - HOT FLUSH [None]
  - DRY MOUTH [None]
  - NAUSEA [None]
  - ANXIETY [None]
  - TENSION [None]
  - DIZZINESS [None]
